FAERS Safety Report 7861444-9 (Version None)
Quarter: 2011Q4

REPORT INFORMATION
  Report Type: 
  Country: None (occurrence: None)
  Receive Date: 20111027
  Receipt Date: 20111020
  Transmission Date: 20120403
  Serious: Yes (Hospitalization, Other)
  Sender: FDA-Public Use
  Company Number: AT-ABBOTT-11P-009-0860373-00

PATIENT
  Sex: Female
  Weight: 56 kg

DRUGS (17)
  1. NORVASC [Concomitant]
     Indication: PRODUCT USED FOR UNKNOWN INDICATION
     Dosage: 1-0-1-0
     Route: 048
     Dates: start: 20100511
  2. ETALPHA [Concomitant]
     Indication: HYPERPARATHYROIDISM SECONDARY
     Route: 048
     Dates: start: 20100511
  3. LOVENOX [Concomitant]
     Indication: PRODUCT USED FOR UNKNOWN INDICATION
     Dosage: MONDAY, WEDNESDAY, FRIDAY
     Route: 042
     Dates: start: 20100709
  4. ASPIRIN [Concomitant]
     Indication: PRODUCT USED FOR UNKNOWN INDICATION
     Route: 048
     Dates: start: 20100511
  5. RENVELA [Concomitant]
     Route: 048
  6. NEORECORMON [Concomitant]
     Indication: PRODUCT USED FOR UNKNOWN INDICATION
     Dosage: 10000/0.6 ML 1-0-0-0 Q MON/WED/FRI
     Route: 042
     Dates: start: 20100707
  7. PANTOPRAZOLE SODIUM [Concomitant]
     Indication: PRODUCT USED FOR UNKNOWN INDICATION
     Dosage: 1-0-0-0
     Route: 048
     Dates: start: 20100511
  8. LEVOTHYROXINE SODIUM [Concomitant]
     Indication: PRODUCT USED FOR UNKNOWN INDICATION
     Dosage: 1/2-0-0-0
     Route: 048
  9. CONCOR [Concomitant]
     Indication: PRODUCT USED FOR UNKNOWN INDICATION
     Dosage: 1/2-0-1/2-0
     Route: 048
     Dates: start: 20100511
  10. LOVENO SYRINGE [Concomitant]
     Indication: PRODUCT USED FOR UNKNOWN INDICATION
     Dosage: 1-0-0-0 Q MON/WED/FRI (CAVE: ONLY BEFORE HAEMODIALYSE)
  11. RENVELA [Concomitant]
     Indication: HYPERPARATHYROIDISM SECONDARY
     Dosage: 2.4 SACHET
     Dates: start: 20100707
  12. RENVELA [Concomitant]
  13. ETALPHA [Concomitant]
     Route: 048
  14. RAPAMUNE UEBERZ [Concomitant]
     Indication: PRODUCT USED FOR UNKNOWN INDICATION
     Route: 048
     Dates: start: 20100615
  15. PROGRAF [Concomitant]
     Indication: PRODUCT USED FOR UNKNOWN INDICATION
     Dosage: 2-0-1-0
     Route: 048
     Dates: start: 20100804
  16. XYZAL [Concomitant]
     Indication: PRODUCT USED FOR UNKNOWN INDICATION
     Route: 048
     Dates: start: 20100511
  17. ZEMPLAR [Suspect]
     Indication: RENAL FAILURE CHRONIC
     Dosage: 5 MCG/ML AMPOULE: 1-0-0-0 Q MON/WED/FRI
     Route: 050
     Dates: start: 20100915

REACTIONS (63)
  - CHOKING SENSATION [None]
  - CARDIAC DISORDER [None]
  - BODY TEMPERATURE DECREASED [None]
  - PANCREATIC ABSCESS [None]
  - BODY TEMPERATURE INCREASED [None]
  - PANCREATIC CYST [None]
  - NUTRITIONAL CONDITION ABNORMAL [None]
  - INFECTIOUS PERITONITIS [None]
  - PERTUSSIS [None]
  - WEIGHT DECREASED [None]
  - RENAL AND PANCREAS TRANSPLANT REJECTION [None]
  - RENAL CYST [None]
  - HERNIA OBSTRUCTIVE [None]
  - PLEURAL EFFUSION [None]
  - GASTROINTESTINAL MOTILITY DISORDER [None]
  - PANCREATITIS [None]
  - TOXICITY TO VARIOUS AGENTS [None]
  - LEUKOPENIA [None]
  - ARTERIOSCLEROSIS CORONARY ARTERY [None]
  - PULMONARY FIBROSIS [None]
  - ASCITES [None]
  - INTESTINAL PERFORATION [None]
  - HYPOTHYROIDISM [None]
  - ATELECTASIS [None]
  - DECREASED APPETITE [None]
  - UTERINE ATROPHY [None]
  - FATIGUE [None]
  - PROCALCITONIN INCREASED [None]
  - CHRONIC ALLOGRAFT NEPHROPATHY [None]
  - CYTOMEGALOVIRUS INFECTION [None]
  - INSOMNIA [None]
  - WHITE BLOOD CELL COUNT INCREASED [None]
  - SKIN ULCER [None]
  - EFFUSION [None]
  - INFLAMMATORY MARKER INCREASED [None]
  - ESSENTIAL HYPERTENSION [None]
  - SYNCOPE [None]
  - TONGUE COATED [None]
  - TYPE 1 DIABETES MELLITUS [None]
  - COUGH [None]
  - LUNG DISORDER [None]
  - PYREXIA [None]
  - OVARIAN ATROPHY [None]
  - RETINOPATHY [None]
  - DIZZINESS [None]
  - GENERAL PHYSICAL HEALTH DETERIORATION [None]
  - OCULAR ICTERUS [None]
  - TONGUE DISCOLOURATION [None]
  - LYMPHADENOPATHY [None]
  - NERVOUS SYSTEM DISORDER [None]
  - ANGIOPLASTY [None]
  - ABDOMINAL DISCOMFORT [None]
  - AORTIC ARTERIOSCLEROSIS [None]
  - RENAL FAILURE CHRONIC [None]
  - ANAEMIA HAEMOLYTIC AUTOIMMUNE [None]
  - DIARRHOEA [None]
  - PERICARDIAL EFFUSION [None]
  - C-REACTIVE PROTEIN INCREASED [None]
  - ABDOMINAL PAIN [None]
  - HIATUS HERNIA [None]
  - AUTOIMMUNE THYROIDITIS [None]
  - POLYNEUROPATHY [None]
  - ATRIAL FIBRILLATION [None]
